FAERS Safety Report 13642646 (Version 1)
Quarter: 2017Q2

REPORT INFORMATION
  Report Type: Spontaneous
  Country: US (occurrence: US)
  Receive Date: 20170612
  Receipt Date: 20170612
  Transmission Date: 20170830
  Serious: No
  Sender: FDA-Public Use
  Company Number: US-SEPTODONT-201603689

PATIENT
  Age: 62 Year
  Sex: Male
  Weight: 81.6 kg

DRUGS (4)
  1. VALSARTAN. [Concomitant]
     Active Substance: VALSARTAN
  2. BENZO-JEL 220 MG/G GEL, DENTIFRICE [Concomitant]
     Dates: start: 20161003, end: 20161003
  3. ROSUVASTATIN CALCIUM. [Concomitant]
     Active Substance: ROSUVASTATIN CALCIUM
  4. 4% ARTICAINE 1:100,000 EPINEPHRINE [Suspect]
     Active Substance: ARTICAINE\EPINEPHRINE
     Indication: LOCAL ANAESTHESIA
     Dosage: INFILTRATION TECHNIQUE WITH 27G 1 3/8 NEEDLE. INJECTION SITE ON TOOTH #20 IN HEALTHY TISSUE
     Route: 004
     Dates: start: 20161003, end: 20161003

REACTIONS (1)
  - Drug ineffective [Recovered/Resolved]

NARRATIVE: CASE EVENT DATE: 20161003
